FAERS Safety Report 6572704-6 (Version None)
Quarter: 2010Q1

REPORT INFORMATION
  Report Type: 
  Country: None (occurrence: None)
  Receive Date: 20100205
  Receipt Date: 20100201
  Transmission Date: 20100710
  Serious: Yes (Hospitalization, Other)
  Sender: FDA-Public Use
  Company Number: CH-PFIZER INC-2010008883

PATIENT
  Age: 88 Year
  Sex: Female

DRUGS (2)
  1. CELEBREX [Suspect]
     Dosage: 200 MG, 1X/DAY
  2. SERESTA [Concomitant]

REACTIONS (3)
  - ANEURYSM [None]
  - CARDIAC FAILURE [None]
  - DYSPNOEA [None]
